FAERS Safety Report 20905240 (Version 2)
Quarter: 2022Q3

REPORT INFORMATION
  Report Type: Spontaneous
  Country: FR (occurrence: FR)
  Receive Date: 20220602
  Receipt Date: 20220725
  Transmission Date: 20221027
  Serious: Yes (Hospitalization, Other)
  Sender: FDA-Public Use
  Company Number: None

PATIENT

DRUGS (5)
  1. TIVICAY [Suspect]
     Active Substance: DOLUTEGRAVIR SODIUM
     Indication: HIV infection
     Dosage: 50 MG
     Route: 048
     Dates: start: 20220415, end: 20220513
  2. PYRIMETHAMINE [Suspect]
     Active Substance: PYRIMETHAMINE
     Indication: Toxoplasmosis
     Dosage: 50 MG
     Route: 048
     Dates: start: 20220414, end: 20220506
  3. TRUVADA [Suspect]
     Active Substance: EMTRICITABINE\TENOFOVIR DISOPROXIL FUMARATE
     Indication: HIV infection
     Dosage: 200 MG
     Route: 048
     Dates: start: 20220415, end: 20220513
  4. BACTRIM [Suspect]
     Active Substance: SULFAMETHOXAZOLE\TRIMETHOPRIM
     Indication: Toxoplasmosis prophylaxis
     Dosage: 75 MG/KG (75/15 MG/KG I.E. 4125/825 MG/D)
     Route: 048
     Dates: start: 20220506, end: 20220512
  5. SULFADIAZINE [Suspect]
     Active Substance: SULFADIAZINE
     Indication: Toxoplasmosis
     Dosage: 4 G
     Route: 048
     Dates: start: 20220414, end: 20220506

REACTIONS (3)
  - Cholestasis [Recovering/Resolving]
  - Drug reaction with eosinophilia and systemic symptoms [Not Recovered/Not Resolved]
  - Hepatic cytolysis [Recovering/Resolving]

NARRATIVE: CASE EVENT DATE: 20220416
